FAERS Safety Report 6536649-X (Version None)
Quarter: 2010Q1

REPORT INFORMATION
  Report Type: 
  Country: None (occurrence: None)
  Receive Date: 20100106
  Receipt Date: 20091221
  Transmission Date: 20100710
  Serious: Yes (Other)
  Sender: FDA-Public Use
  Company Number: WAES 0912USA03343

PATIENT
  Age: 73 Year
  Sex: Female

DRUGS (1)
  1. FOSAMAX PLUS D [Suspect]
     Dosage: PO
     Route: 048
     Dates: start: 20090901

REACTIONS (1)
  - OSTEOMYELITIS [None]
